FAERS Safety Report 7124450-8 (Version None)
Quarter: 2010Q4

REPORT INFORMATION
  Report Type: 
  Country: None (occurrence: None)
  Receive Date: 20101126
  Receipt Date: 20101116
  Transmission Date: 20110411
  Serious: Yes (Hospitalization)
  Sender: FDA-Public Use
  Company Number: US-SANOFI-AVENTIS-2010SA061281

PATIENT
  Age: 79 Year
  Sex: Male
  Weight: 59.54 kg

DRUGS (7)
  1. MULTAQ [Suspect]
     Indication: ATRIAL FIBRILLATION
     Route: 048
     Dates: start: 20100528, end: 20100529
  2. COUMADIN [Concomitant]
     Dosage: MONDAY, WEDNEDAY, FRIDAY
     Route: 048
     Dates: start: 19950101
  3. COUMADIN [Concomitant]
     Dosage: TUESDAY, THURSDAY, SATURDAY, AND SUNDAY
     Route: 048
     Dates: start: 19950101
  4. CARDIZEM [Concomitant]
  5. AMIODARONE [Concomitant]
  6. PREDNISONE [Concomitant]
  7. AVODART [Concomitant]

REACTIONS (8)
  - ABNORMAL BEHAVIOUR [None]
  - AMNESIA [None]
  - ATRIAL FIBRILLATION [None]
  - CHILLS [None]
  - CONFUSIONAL STATE [None]
  - DELUSION [None]
  - MYALGIA [None]
  - TREMOR [None]
